FAERS Safety Report 4283864-4 (Version None)
Quarter: 2004Q1

REPORT INFORMATION
  Report Type: 
  Country: None (occurrence: None)
  Receive Date: 20040130
  Receipt Date: 20040121
  Transmission Date: 20041129
  Serious: Yes (Death)
  Sender: FDA-Public Use
  Company Number: HQWYE503021JAN04

PATIENT
  Sex: Male

DRUGS (2)
  1. CORDARONE [Suspect]
     Indication: ATRIAL FIBRILLATION
  2. SINTROM [Concomitant]

REACTIONS (3)
  - CHEST X-RAY ABNORMAL [None]
  - PNEUMONITIS [None]
  - PULMONARY HYPERTENSION [None]
